FAERS Safety Report 25611629 (Version 1)
Quarter: 2025Q3

REPORT INFORMATION
  Report Type: Report from Study
  Country: US (occurrence: US)
  Receive Date: 20250728
  Receipt Date: 20250728
  Transmission Date: 20251020
  Serious: Yes (Other)
  Sender: ABBVIE
  Company Number: US-ABBVIE-6385608

PATIENT
  Age: 64 Year
  Sex: Female

DRUGS (1)
  1. HUMIRA [Suspect]
     Active Substance: ADALIMUMAB
     Indication: Psoriatic arthropathy
     Route: 058

REACTIONS (4)
  - Nephropathy toxic [Unknown]
  - Pneumonia viral [Unknown]
  - Hepatotoxicity [Unknown]
  - Illness [Unknown]

NARRATIVE: CASE EVENT DATE: 20250301
